FAERS Safety Report 23069820 (Version 2)
Quarter: 2023Q4

REPORT INFORMATION
  Report Type: Spontaneous
  Country: US (occurrence: US)
  Receive Date: 20231016
  Receipt Date: 20231024
  Transmission Date: 20240110
  Serious: Yes (Life-Threatening, Hospitalization, Other)
  Sender: FDA-Public Use
  Company Number: US-PFIZER INC-PV202300166601

PATIENT
  Age: 70 Year
  Sex: Female

DRUGS (5)
  1. PYRIDIUM [Interacting]
     Active Substance: PHENAZOPYRIDINE
     Indication: Pain management
     Dosage: UNK UNK, AS NEEDED
     Route: 048
  2. BACTRIM [Interacting]
     Active Substance: SULFAMETHOXAZOLE\TRIMETHOPRIM
     Indication: Urinary tract infection
     Dosage: HALF A TAB EVERY DAY
  3. BACTRIM [Interacting]
     Active Substance: SULFAMETHOXAZOLE\TRIMETHOPRIM
     Indication: Prophylaxis urinary tract infection
     Dosage: THE DAY PRIOR TO PRESENTING TO THE ED
  4. BACTRIM [Interacting]
     Active Substance: SULFAMETHOXAZOLE\TRIMETHOPRIM
     Dosage: THE DAY SHE PRESENTED TO THE ED
  5. MORPHINE [Concomitant]
     Active Substance: MORPHINE
     Indication: Pain management
     Dosage: 4 MG, SINGLE

REACTIONS (3)
  - Drug interaction [Unknown]
  - Methaemoglobinaemia [Recovering/Resolving]
  - Hypoxia [Unknown]
